FAERS Safety Report 6833722-3 (Version None)
Quarter: 2010Q3

REPORT INFORMATION
  Report Type: 
  Country: None (occurrence: None)
  Receive Date: 20100712
  Receipt Date: 20070330
  Transmission Date: 20110219
  Serious: No
  Sender: FDA-Public Use
  Company Number: US-PFIZER INC-2007027402

PATIENT
  Sex: Male

DRUGS (10)
  1. CHANTIX [Suspect]
     Indication: SMOKING CESSATION THERAPY
     Route: 048
     Dates: start: 20070313
  2. GABAPENTIN [Concomitant]
  3. CIPROFLOXACIN [Concomitant]
     Dates: start: 20070201, end: 20070201
  4. TOPROL-XL [Concomitant]
  5. FLUCONAZOLE [Concomitant]
  6. MINOXIDIL [Concomitant]
     Route: 048
  7. SIMVASTATIN [Concomitant]
  8. ISOSORBIDE DINITRATE [Concomitant]
  9. LISINOPRIL [Concomitant]
  10. GLIPIZIDE [Concomitant]

REACTIONS (1)
  - HYPERSOMNIA [None]
